FAERS Safety Report 6614091-0 (Version None)
Quarter: 2010Q1

REPORT INFORMATION
  Report Type: 
  Country: None (occurrence: None)
  Receive Date: 20100304
  Receipt Date: 20100222
  Transmission Date: 20100710
  Serious: Yes (Other)
  Sender: FDA-Public Use
  Company Number: PHHY2009NO53248

PATIENT
  Age: 66 Year
  Sex: Male

DRUGS (2)
  1. ZOMETA [Suspect]
     Indication: METASTASIS
     Dosage: 4 MG, QMO
     Dates: start: 20060601, end: 20090501
  2. SUTENT [Concomitant]
     Dosage: UNK
     Dates: start: 20071101

REACTIONS (4)
  - OSTEONECROSIS [None]
  - PAIN IN JAW [None]
  - TOOTH EXTRACTION [None]
  - TOOTHACHE [None]
